FAERS Safety Report 23090403 (Version 1)
Quarter: 2023Q4

REPORT INFORMATION
  Report Type: Spontaneous
  Country: AU (occurrence: AU)
  Receive Date: 20231020
  Receipt Date: 20231020
  Transmission Date: 20240110
  Serious: Yes (Other)
  Sender: FDA-Public Use
  Company Number: AU-TAKEDA-2023TUS100959

PATIENT
  Sex: Male

DRUGS (4)
  1. PRUCALOPRIDE [Suspect]
     Active Substance: PRUCALOPRIDE
     Indication: Product used for unknown indication
     Dosage: UNK
     Route: 065
  2. BACLOFEN [Concomitant]
     Active Substance: BACLOFEN
     Dosage: UNK
     Route: 065
  3. GABAPENTIN [Concomitant]
     Active Substance: GABAPENTIN
     Dosage: UNK
     Route: 065
  4. LEVODOPA [Concomitant]
     Active Substance: LEVODOPA
     Dosage: UNK
     Route: 065

REACTIONS (2)
  - Suicidal ideation [Unknown]
  - Depression [Unknown]
